FAERS Safety Report 23535626 (Version 2)
Quarter: 2024Q1

REPORT INFORMATION
  Report Type: Spontaneous
  Country: JP (occurrence: JP)
  Receive Date: 20240218
  Receipt Date: 20240307
  Transmission Date: 20240410
  Serious: No
  Sender: FDA-Public Use
  Company Number: JP-GSKNCCC-Case-01915572_AE-80362

PATIENT

DRUGS (2)
  1. ATOVAQUONE [Suspect]
     Active Substance: ATOVAQUONE
     Indication: Pneumonia
     Dosage: UNK
     Dates: start: 202309
  2. IMBRUVICA [Concomitant]
     Active Substance: IBRUTINIB
     Indication: Lymphoma
     Dosage: 280 MG, QD

REACTIONS (2)
  - Taste disorder [Unknown]
  - Decreased appetite [Unknown]
